FAERS Safety Report 7804666-5 (Version None)
Quarter: 2011Q4

REPORT INFORMATION
  Report Type: 
  Country: None (occurrence: None)
  Receive Date: 20111010
  Receipt Date: 20110929
  Transmission Date: 20120403
  Serious: Yes (Other)
  Sender: FDA-Public Use
  Company Number: JP-ASTRAZENECA-2011SE59642

PATIENT
  Sex: Male

DRUGS (2)
  1. SEROQUEL [Suspect]
     Route: 048
  2. OTHER MEDICATIONS [Concomitant]

REACTIONS (2)
  - SYSTEMIC LUPUS ERYTHEMATOSUS [None]
  - ANTINUCLEAR ANTIBODY INCREASED [None]
